FAERS Safety Report 14844565 (Version 1)
Quarter: 2018Q2

REPORT INFORMATION
  Report Type: Spontaneous
  Country: JP (occurrence: JP)
  Receive Date: 20180503
  Receipt Date: 20180503
  Transmission Date: 20180711
  Serious: Yes (Other)
  Sender: FDA-Public Use
  Company Number: JP-TOLMAR, INC.-TOLG20180241

PATIENT
  Age: 33 Year
  Sex: Male

DRUGS (3)
  1. LEVOFLOXACIN. [Concomitant]
     Active Substance: LEVOFLOXACIN
     Indication: PRODUCT USED FOR UNKNOWN INDICATION
     Dosage: UNKNOWN
     Route: 047
  2. DICLOFENAC SODIUM. [Suspect]
     Active Substance: DICLOFENAC SODIUM
     Indication: ANTIINFLAMMATORY THERAPY
     Dosage: UNKNOWN
     Route: 047
  3. BETAMETHASONE. [Concomitant]
     Active Substance: BETAMETHASONE
     Indication: PRODUCT USED FOR UNKNOWN INDICATION
     Dosage: UNKNOWN
     Route: 047

REACTIONS (10)
  - Persistent corneal epithelial defect [Recovering/Resolving]
  - Corneal lesion [Recovering/Resolving]
  - Corneal oedema [Recovered/Resolved]
  - Ulcerative keratitis [Recovering/Resolving]
  - Ciliary hyperaemia [Recovering/Resolving]
  - Inappropriate schedule of drug administration [None]
  - Corneal infiltrates [Recovering/Resolving]
  - Corneal opacity [Not Recovered/Not Resolved]
  - Corneal erosion [Recovering/Resolving]
  - Incorrect drug administration duration [None]
